FAERS Safety Report 26046422 (Version 1)
Quarter: 2025Q4

REPORT INFORMATION
  Report Type: Report from Study
  Country: US (occurrence: US)
  Receive Date: 20251114
  Receipt Date: 20251114
  Transmission Date: 20260117
  Serious: Yes (Other)
  Sender: ACADIA PHARMACEUTICALS
  Company Number: US-ACADIA PHARMACEUTICALS INC.-ACA-2025-PIM-012065

PATIENT
  Age: 54 Year
  Sex: Male

DRUGS (15)
  1. NUPLAZID [Suspect]
     Active Substance: PIMAVANSERIN TARTRATE
     Indication: Parkinson^s disease
     Dosage: 34 MILLIGRAM, QD
     Dates: start: 20250318
  2. LEVOTHYROXINE [Concomitant]
     Active Substance: LEVOTHYROXINE
  3. LOSARTAN [Concomitant]
     Active Substance: LOSARTAN
  4. BUMEX [Concomitant]
     Active Substance: BUMETANIDE
  5. DOXAZOSIN [Concomitant]
     Active Substance: DOXAZOSIN MESYLATE
  6. LIPITOR [Concomitant]
     Active Substance: ATORVASTATIN CALCIUM
  7. SINEMET [Concomitant]
     Active Substance: CARBIDOPA\LEVODOPA
  8. MIRTAZAPINE [Concomitant]
     Active Substance: MIRTAZAPINE
  9. FENOFIBRATE [Concomitant]
     Active Substance: FENOFIBRATE
  10. ASPIRIN [Concomitant]
     Active Substance: ASPIRIN
  11. KLONOPIN [Concomitant]
     Active Substance: CLONAZEPAM
  12. AMANTADINE [Concomitant]
     Active Substance: AMANTADINE
  13. CARVEDILOL [Concomitant]
     Active Substance: CARVEDILOL
  14. VITAMIN B12 [Concomitant]
     Active Substance: CYANOCOBALAMIN
  15. IRON [Concomitant]
     Active Substance: IRON

REACTIONS (7)
  - Hallucination [Not Recovered/Not Resolved]
  - Dizziness [Not Recovered/Not Resolved]
  - Hypotension [Not Recovered/Not Resolved]
  - Abdominal distension [Recovering/Resolving]
  - Fall [Not Recovered/Not Resolved]
  - Constipation [Not Recovered/Not Resolved]
  - Peripheral swelling [Not Recovered/Not Resolved]

NARRATIVE: CASE EVENT DATE: 20251023
